FAERS Safety Report 8086702-7 (Version None)
Quarter: 2012Q1

REPORT INFORMATION
  Report Type: 
  Country: None (occurrence: None)
  Receive Date: 20120128
  Receipt Date: 20110418
  Transmission Date: 20120608
  Serious: No
  Sender: FDA-Public Use
  Company Number: US-ABBOTT-11P-163-0720825-00

PATIENT
  Sex: Female
  Weight: 83.082 kg

DRUGS (7)
  1. HUMIRA [Suspect]
     Indication: RHEUMATOID ARTHRITIS
     Dates: start: 20060101, end: 20060101
  2. LEFLUNOMIDE [Concomitant]
     Indication: RHEUMATOID ARTHRITIS
  3. HUMALOG [Concomitant]
     Indication: DIABETES MELLITUS
  4. TRAMADOL HCL [Concomitant]
     Indication: PAIN
  5. LISINOPRIL [Concomitant]
     Indication: HYPERTENSION
  6. HUMIRA [Suspect]
     Dates: start: 20070101, end: 20080101
  7. PREDNISONE TAB [Concomitant]
     Indication: RHEUMATOID ARTHRITIS

REACTIONS (1)
  - DRUG EFFECT DECREASED [None]
